FAERS Safety Report 10398908 (Version 3)
Quarter: 2015Q1

REPORT INFORMATION
  Report Type: Report from Study
  Country: SE (occurrence: None)
  Receive Date: 20140819
  Receipt Date: 20150319
  Transmission Date: 20150720
  Serious: Yes (Death)
  Sender: FDA-Public Use
  Company Number: 2300887

PATIENT
  Age: 86 Year
  Sex: Male
  Weight: 61 kg

DRUGS (1)
  1. DEXMEDETOMIDINE HYDROCHLORIDE. [Suspect]
     Active Substance: DEXMEDETOMIDINE HYDROCHLORIDE
     Indication: PRODUCT USED FOR UNKNOWN INDICATION
     Dosage: 0.5 - 0.7 MCG/KG/H (UNKNOWN), INTRAVENOUS (NOT OTHERWISE SPECIFIED)?
     Route: 042
     Dates: start: 20131105, end: 20131105

REACTIONS (6)
  - Respiratory failure [None]
  - Pneumonia aspiration [None]
  - Circulatory collapse [None]
  - General physical health deterioration [None]
  - Sepsis [None]
  - No therapeutic response [None]

NARRATIVE: CASE EVENT DATE: 20131031
